FAERS Safety Report 9255924 (Version 1)
Quarter: 2013Q2

REPORT INFORMATION
  Report Type: Spontaneous
  Country: US (occurrence: US)
  Receive Date: 20130425
  Receipt Date: 20130425
  Transmission Date: 20140414
  Serious: No
  Sender: FDA-Public Use
  Company Number: US-ASTRAZENECA-2013SE25316

PATIENT
  Age: 45 Year
  Sex: Male
  Weight: 86.6 kg

DRUGS (5)
  1. NEXIUM [Suspect]
     Indication: GASTROOESOPHAGEAL REFLUX DISEASE
     Route: 048
     Dates: start: 2000
  2. METFORMIN [Suspect]
     Indication: DIABETES MELLITUS
     Route: 065
     Dates: start: 2007
  3. ZANTAC [Concomitant]
     Dates: start: 201303
  4. GLIPIZYDE [Concomitant]
     Indication: DIABETES MELLITUS
  5. NEURONTIN [Concomitant]
     Indication: DIABETIC NEUROPATHY
     Dates: start: 201303

REACTIONS (8)
  - Diabetes mellitus [Unknown]
  - Hiatus hernia [Unknown]
  - Erosive oesophagitis [Unknown]
  - Diabetic neuropathy [Unknown]
  - Oesophageal food impaction [Unknown]
  - Pain [Unknown]
  - Nausea [Unknown]
  - Vomiting [Unknown]
